FAERS Safety Report 5804282-0 (Version None)
Quarter: 2008Q3

REPORT INFORMATION
  Report Type: 
  Country: None (occurrence: None)
  Receive Date: 20080709
  Receipt Date: 20080702
  Transmission Date: 20090109
  Serious: Yes (Hospitalization, Other)
  Sender: FDA-Public Use
  Company Number: US-JNJFOC-20080606537

PATIENT
  Sex: Male
  Weight: 88.45 kg

DRUGS (6)
  1. INFLIXIMAB [Suspect]
     Route: 042
  2. INFLIXIMAB [Suspect]
     Route: 042
  3. INFLIXIMAB [Suspect]
     Indication: CROHN'S DISEASE
     Route: 042
  4. VITAMIN B-12 [Concomitant]
     Indication: CROHN'S DISEASE
  5. FISH OIL [Concomitant]
     Indication: CROHN'S DISEASE
  6. MESALAMINE [Concomitant]
     Indication: CROHN'S DISEASE

REACTIONS (1)
  - CORONARY ARTERY STENOSIS [None]
